FAERS Safety Report 7769289-5 (Version None)
Quarter: 2011Q3

REPORT INFORMATION
  Report Type: 
  Country: None (occurrence: None)
  Receive Date: 20110922
  Receipt Date: 20110713
  Transmission Date: 20111222
  Serious: No
  Sender: FDA-Public Use
  Company Number: US-ASTRAZENECA-2011SE42061

PATIENT
  Age: 61 Year
  Sex: Female

DRUGS (4)
  1. SEROQUEL [Suspect]
     Indication: SLEEP DISORDER
     Route: 048
  2. TRAZODONE HCL [Concomitant]
  3. BACLOFEN [Concomitant]
  4. XANAX [Concomitant]

REACTIONS (2)
  - OFF LABEL USE [None]
  - GINGIVAL SWELLING [None]
